FAERS Safety Report 17162611 (Version 1)
Quarter: 2019Q4

REPORT INFORMATION
  Report Type: Spontaneous
  Country: US (occurrence: US)
  Receive Date: 20191216
  Receipt Date: 20191216
  Transmission Date: 20200122
  Serious: Yes (Hospitalization)
  Sender: FDA-Public Use
  Company Number: None

PATIENT
  Age: 52 Year
  Sex: Female

DRUGS (4)
  1. ZARXIO [Suspect]
     Active Substance: FILGRASTIM-SNDZ
     Indication: BREAST CANCER FEMALE
     Dosage: ?          OTHER FREQUENCY:2PR DAY AFTR CHEMO;?
     Route: 058
     Dates: start: 20191122
  2. PROTONIX [Concomitant]
     Active Substance: PANTOPRAZOLE SODIUM
     Dates: start: 20191213
  3. TAXOL [Concomitant]
     Active Substance: PACLITAXEL
     Dates: start: 20191213
  4. SUCRALFATE. [Concomitant]
     Active Substance: SUCRALFATE
     Dates: start: 20191213

REACTIONS (4)
  - Bone pain [None]
  - Pneumonia [None]
  - Large intestine infection [None]
  - Nausea [None]

NARRATIVE: CASE EVENT DATE: 20191213
